FAERS Safety Report 15007069 (Version 1)
Quarter: 2018Q2

REPORT INFORMATION
  Report Type: Spontaneous
  Country: US (occurrence: US)
  Receive Date: 20180613
  Receipt Date: 20180613
  Transmission Date: 20180711
  Serious: No
  Sender: FDA-Public Use
  Company Number: US-GALDERMA-US18004845

PATIENT
  Sex: Female

DRUGS (5)
  1. PROACTIV REVITALIZING TONER [Concomitant]
     Route: 061
  2. PROACTIV REPAIRING TREATMENT [Concomitant]
     Active Substance: BENZOYL PEROXIDE
     Route: 061
  3. PROACTIV RENEWING CLEANSER [Concomitant]
     Active Substance: BENZOYL PEROXIDE
     Route: 061
  4. NEUTROGENA [Concomitant]
     Active Substance: COSMETICS
     Indication: SUNBURN
  5. PROACTIV MD ADAPALENE ACNE TREATMENT [Suspect]
     Active Substance: ADAPALENE
     Indication: PRODUCT USED FOR UNKNOWN INDICATION
     Dosage: 0.1%
     Route: 061

REACTIONS (3)
  - Skin exfoliation [Unknown]
  - Rash [Unknown]
  - Skin burning sensation [Unknown]
